FAERS Safety Report 5794868-4 (Version None)
Quarter: 2008Q2

REPORT INFORMATION
  Report Type: 
  Country: None (occurrence: None)
  Receive Date: 20080627
  Receipt Date: 20080627
  Transmission Date: 20081010
  Serious: Yes (Life-Threatening, Other)
  Sender: FDA-Public Use
  Company Number: None

PATIENT
  Age: 35 Year
  Weight: 64 kg

DRUGS (1)
  1. CHANTIX [Suspect]
     Indication: SMOKING CESSATION THERAPY
     Dates: start: 20070124, end: 20070320

REACTIONS (43)
  - ABNORMAL BEHAVIOUR [None]
  - AGGRESSION [None]
  - ANGER [None]
  - ANHEDONIA [None]
  - ARTHRALGIA [None]
  - CEREBRAL DISORDER [None]
  - COGNITIVE DISORDER [None]
  - CONFUSIONAL STATE [None]
  - CONSTIPATION [None]
  - CONVERSION DISORDER [None]
  - COORDINATION ABNORMAL [None]
  - CORRECTIVE LENS USER [None]
  - CRYING [None]
  - DISORIENTATION [None]
  - DISTURBANCE IN ATTENTION [None]
  - DYSGEUSIA [None]
  - EMOTIONAL DISORDER [None]
  - EUPHORIC MOOD [None]
  - FEAR [None]
  - FEELING ABNORMAL [None]
  - FLIGHT OF IDEAS [None]
  - HALLUCINATION [None]
  - HYPERVIGILANCE [None]
  - IMPULSIVE BEHAVIOUR [None]
  - INSOMNIA [None]
  - MASOCHISM [None]
  - MENTAL DISORDER [None]
  - MOOD SWINGS [None]
  - MUSCLE TIGHTNESS [None]
  - NEGLECT OF PERSONAL APPEARANCE [None]
  - PARAESTHESIA [None]
  - PAROSMIA [None]
  - PERFORMANCE STATUS DECREASED [None]
  - PERSONALITY CHANGE [None]
  - SELF ESTEEM DECREASED [None]
  - SOCIAL AVOIDANT BEHAVIOUR [None]
  - SPEECH DISORDER [None]
  - SUICIDAL IDEATION [None]
  - THINKING ABNORMAL [None]
  - VIOLENCE-RELATED SYMPTOM [None]
  - VISION BLURRED [None]
  - VISUAL DISTURBANCE [None]
  - WEIGHT INCREASED [None]
